FAERS Safety Report 4425667-3 (Version None)
Quarter: 2004Q3

REPORT INFORMATION
  Report Type: 
  Country: None (occurrence: None)
  Receive Date: 20040716
  Receipt Date: 20030829
  Transmission Date: 20050211
  Serious: Yes (Death, Life-Threatening, Hospitalization, Other)
  Sender: FDA-Public Use
  Company Number: US_030897138

PATIENT
  Age: 62 Year
  Sex: Female
  Weight: 51 kg

DRUGS (16)
  1. XIGRIS [Suspect]
     Indication: SEPSIS
     Dosage: UNK
     Route: 065
     Dates: start: 20030703, end: 20030707
  2. HEPARIN SODIUM [Suspect]
     Indication: DISSEMINATED INTRAVASCULAR COAGULATION
     Dosage: UNK
     Route: 065
     Dates: start: 20030706
  3. CALCIUM GLUCONATE [Concomitant]
  4. POTASSIUM CHLORIDE [Concomitant]
  5. HYDROCORTISONE [Concomitant]
  6. ZOSYN [Concomitant]
  7. CIPROFLOXACIN [Concomitant]
  8. NOREPINEPHRINE [Concomitant]
  9. PHENYLEPHRINE [Concomitant]
  10. CARVEDILOL [Concomitant]
  11. MORPHINE [Concomitant]
  12. MAGNESIUM SULFATE [Concomitant]
  13. AMIODARONE [Concomitant]
  14. NIMBEX [Concomitant]
  15. FENTANYL [Concomitant]
  16. VERSED [Concomitant]

REACTIONS (5)
  - DISSEMINATED INTRAVASCULAR COAGULATION [None]
  - HEPARIN-INDUCED THROMBOCYTOPENIA [None]
  - INTRACARDIAC THROMBUS [None]
  - MULTIPLE MYELOMA [None]
  - MYOCARDIAL INFARCTION [None]
